FAERS Safety Report 4496105-X (Version None)
Quarter: 2004Q4

REPORT INFORMATION
  Report Type: 
  Country: None (occurrence: None)
  Receive Date: 20041108
  Receipt Date: 20041029
  Transmission Date: 20050328
  Serious: Yes (Other)
  Sender: FDA-Public Use
  Company Number: GB-MERCK-0411GBR00012

PATIENT
  Age: 69 Year

DRUGS (13)
  1. METHOTREXATE [Concomitant]
     Indication: RHEUMATOID ARTHRITIS
     Route: 048
  2. HYDROXYCHLOROQUINE SULFATE [Concomitant]
     Route: 065
  3. ALBUTEROL [Concomitant]
     Route: 055
  4. CALCIUM CARBONATE AND CHOLECALCIFEROL [Concomitant]
     Route: 065
  5. BUDESONIDE AND FORMOTEROL FUMARATE [Concomitant]
     Route: 055
  6. TIOTROPIUM BROMIDE [Concomitant]
     Route: 055
  7. AMITRIPTYLINE HYDROCHLORIDE [Concomitant]
     Route: 065
  8. ASPIRIN [Concomitant]
     Route: 065
  9. SIMVASTATIN [Concomitant]
     Route: 065
  10. ACETAMINOPHEN [Concomitant]
     Route: 065
  11. VIOXX [Suspect]
     Indication: RHEUMATOID ARTHRITIS
     Route: 048
     Dates: start: 20001117, end: 20041001
  12. DERMATOLOGIC (UNSPECIFIED) [Concomitant]
     Indication: DRY SKIN
     Route: 061
     Dates: start: 20000101
  13. FOLIC ACID [Concomitant]
     Indication: RHEUMATOID ARTHRITIS
     Route: 048
     Dates: start: 20000510

REACTIONS (1)
  - CEREBROVASCULAR ACCIDENT [None]
